FAERS Safety Report 9637060 (Version 1)
Quarter: 2013Q4

REPORT INFORMATION
  Report Type: Spontaneous
  Country: US (occurrence: US)
  Receive Date: 20131022
  Receipt Date: 20131022
  Transmission Date: 20140711
  Serious: Yes (Other)
  Sender: FDA-Public Use
  Company Number: US-RB-059018-13

PATIENT
  Sex: Male

DRUGS (1)
  1. DELSYM ADULT LIQUID UNSPECIFIED [Suspect]
     Indication: PRODUCT USED FOR UNKNOWN INDICATION
     Dosage: DRANK A WHOLE BOTTLE OF PRODUCT
     Route: 048

REACTIONS (6)
  - Drug abuse [Unknown]
  - Feeling abnormal [Unknown]
  - Somnolence [Unknown]
  - Irritability [Unknown]
  - Headache [Unknown]
  - Nausea [Unknown]
